FAERS Safety Report 6087201-4 (Version None)
Quarter: 2009Q1

REPORT INFORMATION
  Report Type: 
  Country: None (occurrence: None)
  Receive Date: 20090223
  Receipt Date: 20090217
  Transmission Date: 20090719
  Serious: Yes (Life-Threatening, Hospitalization)
  Sender: FDA-Public Use
  Company Number: US-MERCK-0902USA02951

PATIENT
  Sex: Female

DRUGS (1)
  1. JANUMET [Suspect]
     Indication: DIABETES MELLITUS
     Route: 048

REACTIONS (2)
  - LACTIC ACIDOSIS [None]
  - SEPSIS [None]
